FAERS Safety Report 9713848 (Version 2)
Quarter: 2014Q1

REPORT INFORMATION
  Report Type: Spontaneous
  Country: US (occurrence: US)
  Receive Date: 20131126
  Receipt Date: 20140221
  Transmission Date: 20141002
  Serious: Yes (Hospitalization)
  Sender: FDA-Public Use
  Company Number: US-GLAXOSMITHKLINE-A1051068A

PATIENT
  Sex: Male

DRUGS (13)
  1. ADVAIR [Suspect]
     Indication: ASTHMA
     Dosage: 1PUFF TWICE PER DAY
     Route: 055
  2. ALBUTEROL [Concomitant]
  3. NORCO [Concomitant]
  4. WELCHOL [Concomitant]
  5. AZATHIOPRINE [Concomitant]
  6. PAROXETINE HCL [Concomitant]
  7. KLOR-CON [Concomitant]
  8. PREDNISONE [Concomitant]
  9. CARVEDILOL [Concomitant]
  10. HUMIRA [Concomitant]
  11. TUDORZA [Concomitant]
  12. TESTOSTERONE [Concomitant]
  13. OXYGEN [Concomitant]

REACTIONS (7)
  - Pneumonia [Unknown]
  - Listeriosis [Unknown]
  - Drug ineffective [Unknown]
  - Bronchitis [Unknown]
  - Nasopharyngitis [Unknown]
  - Product quality issue [Unknown]
  - Adverse drug reaction [Unknown]
